FAERS Safety Report 4335027-1 (Version None)
Quarter: 2004Q2

REPORT INFORMATION
  Report Type: 
  Country: None (occurrence: None)
  Receive Date: 20040408
  Receipt Date: 20040318
  Transmission Date: 20050107
  Serious: Yes (Congenital Anomaly)
  Sender: FDA-Public Use
  Company Number: US-GLAXOSMITHKLINE-A0503496A

PATIENT
  Sex: Male
  Weight: 3 kg

DRUGS (2)
  1. COMBIVIR [Suspect]
     Indication: HIV INFECTION
     Dosage: 2TAB PER DAY
     Dates: start: 20031103
  2. ZIDOVUDINE [Suspect]
     Indication: ANTIVIRAL PROPHYLAXIS
     Dosage: 3MG PER DAY
     Dates: start: 20040308, end: 20040308

REACTIONS (6)
  - HYPOSPADIAS [None]
  - NEONATAL PNEUMONIA [None]
  - NEONATAL TACHYPNOEA [None]
  - PNEUMONIA [None]
  - TACHYPNOEA [None]
  - ULTRASOUND ANTENATAL SCREEN ABNORMAL [None]
